FAERS Safety Report 8848280 (Version 2)
Quarter: 2012Q4

REPORT INFORMATION
  Report Type: Report from Study
  Country: DE (occurrence: DE)
  Receive Date: 20121018
  Receipt Date: 20121106
  Transmission Date: 20130627
  Serious: Yes (Other)
  Sender: FDA-Public Use
  Company Number: DE-ROCHE-1146766

PATIENT
  Sex: Male
  Weight: 80 kg

DRUGS (1)
  1. CAPECITABINE [Suspect]
     Indication: METASTATIC GASTRIC CANCER
     Route: 048
     Dates: start: 20110926, end: 20120429

REACTIONS (1)
  - Malignant neoplasm progression [Not Recovered/Not Resolved]
